FAERS Safety Report 16239369 (Version 2)
Quarter: 2019Q2

REPORT INFORMATION
  Report Type: Spontaneous
  Country: US (occurrence: US)
  Receive Date: 20190425
  Receipt Date: 20190610
  Transmission Date: 20190711
  Serious: Yes (Other)
  Sender: FDA-Public Use
  Company Number: US-PFIZER INC-2019169068

PATIENT
  Sex: Male

DRUGS (1)
  1. AMLODIPINE BESILATE [Suspect]
     Active Substance: AMLODIPINE BESYLATE
     Dosage: UNK

REACTIONS (10)
  - Aortic dilatation [Unknown]
  - Anxiety [Unknown]
  - Depression [Unknown]
  - Musculoskeletal chest pain [Unknown]
  - Cerebrovascular accident [Unknown]
  - Labile blood pressure [Unknown]
  - Peripheral swelling [Not Recovered/Not Resolved]
  - Coronary artery disease [Unknown]
  - Aortic valve incompetence [Unknown]
  - Low density lipoprotein increased [Unknown]

NARRATIVE: CASE EVENT DATE: 201902
